FAERS Safety Report 11422610 (Version 1)
Quarter: 2015Q3

REPORT INFORMATION
  Report Type: Spontaneous
  Country: US (occurrence: None)
  Receive Date: 20150826
  Receipt Date: 20150826
  Transmission Date: 20151125
  Serious: Yes (Other)
  Sender: FDA-Public Use
  Company Number: None

PATIENT
  Age: 31 Year
  Sex: Male

DRUGS (2)
  1. CREST PRO-HEALTH CLINICAL [Suspect]
     Active Substance: CETYLPYRIDINIUM CHLORIDE
     Indication: OROPHARYNGEAL PLAQUE
     Dates: start: 20150823, end: 20150824
  2. CREST PRO-HEALTH CLINICAL [Suspect]
     Active Substance: CETYLPYRIDINIUM CHLORIDE
     Indication: GINGIVITIS
     Dates: start: 20150823, end: 20150824

REACTIONS (4)
  - Oral pain [None]
  - Ageusia [None]
  - Chemical burn of gastrointestinal tract [None]
  - Blister [None]

NARRATIVE: CASE EVENT DATE: 20150825
